FAERS Safety Report 6552259-2 (Version None)
Quarter: 2010Q1

REPORT INFORMATION
  Report Type: 
  Country: None (occurrence: None)
  Receive Date: 20100126
  Receipt Date: 20100122
  Transmission Date: 20100710
  Serious: Yes (Other)
  Sender: FDA-Public Use
  Company Number: AU-PFIZER INC-2010009323

PATIENT
  Age: 63 Year
  Sex: Female

DRUGS (3)
  1. SALAZOPYRIN [Suspect]
  2. CYMBALTA [Concomitant]
     Dosage: 30 MG, UNK
  3. CRESTOR [Concomitant]

REACTIONS (2)
  - DEPRESSED MOOD [None]
  - SUICIDAL BEHAVIOUR [None]
